FAERS Safety Report 5000237-7 (Version None)
Quarter: 2006Q2

REPORT INFORMATION
  Report Type: 
  Country: None (occurrence: None)
  Receive Date: 20060511
  Receipt Date: 20050331
  Transmission Date: 20061013
  Serious: Yes (Death, Hospitalization)
  Sender: FDA-Public Use
  Company Number: US-MERCK-0504USA00565

PATIENT
  Age: 74 Year
  Sex: Male
  Weight: 73 kg

DRUGS (2)
  1. VIOXX [Suspect]
     Indication: OSTEOARTHRITIS
     Route: 048
     Dates: start: 20010101, end: 20020101
  2. XANAX [Concomitant]
     Indication: DEPRESSION
     Route: 065

REACTIONS (6)
  - ATRIAL FIBRILLATION [None]
  - CORONARY ARTERY DISEASE [None]
  - GASTROINTESTINAL HAEMORRHAGE [None]
  - LOWER GASTROINTESTINAL HAEMORRHAGE [None]
  - RESPIRATORY FAILURE [None]
  - TACHYCARDIA [None]
